FAERS Safety Report 5215948-8 (Version None)
Quarter: 2007Q1

REPORT INFORMATION
  Report Type: 
  Country: None (occurrence: None)
  Receive Date: 20070123
  Receipt Date: 20070113
  Transmission Date: 20070707
  Serious: Yes (Hospitalization)
  Sender: FDA-Public Use
  Company Number: SE-NOVOPROD-259372

PATIENT
  Age: 40 Year
  Sex: Female

DRUGS (10)
  1. NOVOSEVEN [Suspect]
     Indication: OPERATIVE HAEMORRHAGE
     Dosage: 9 MG, UNK
     Route: 042
     Dates: start: 20060218, end: 20060218
  2. CYCLOKAPRON [Suspect]
     Indication: HAEMORRHAGE
     Dosage: 10 ML, BID
     Dates: start: 20060218, end: 20060218
  3. PROTHROMPLEX                       /00581301/ [Concomitant]
     Dosage: 500 U, UNK
  4. OCTOSTIM [Concomitant]
  5. HUMATE-P [Concomitant]
  6. FRAGMIN [Concomitant]
  7. SYNTOCINON [Concomitant]
  8. ZINACEF                            /00454601/ [Concomitant]
  9. FLAGYL                             /00012501/ [Concomitant]
  10. PROSTINFENEM [Concomitant]

REACTIONS (1)
  - PELVIC VENOUS THROMBOSIS [None]
